FAERS Safety Report 9904737 (Version 3)
Quarter: 2014Q4

REPORT INFORMATION
  Report Type: Spontaneous
  Country: US (occurrence: US)
  Receive Date: 20140218
  Receipt Date: 20141209
  Transmission Date: 20150529
  Serious: Yes (Hospitalization)
  Sender: FDA-Public Use
  Company Number: US-BAYER-2014-024788

PATIENT
  Age: 22 Year
  Sex: Female
  Weight: 41.72 kg

DRUGS (2)
  1. MIRENA [Suspect]
     Active Substance: LEVONORGESTREL
     Indication: CONTRACEPTION
     Dosage: 20 MCG/24HR, CONT
     Route: 015
     Dates: start: 20111005, end: 20120926
  2. ZOLOFT [Concomitant]
     Active Substance: SERTRALINE HYDROCHLORIDE
     Indication: POSTPARTUM DEPRESSION
     Dosage: 50 MG, UNK
     Dates: start: 20110930, end: 20120817

REACTIONS (9)
  - Uterine perforation [None]
  - Device issue [None]
  - Device failure [None]
  - Pain [None]
  - Scar [None]
  - Procedural pain [None]
  - Medical device pain [None]
  - Medical device discomfort [None]
  - Injury [None]

NARRATIVE: CASE EVENT DATE: 20120926
